FAERS Safety Report 18016369 (Version 1)
Quarter: 2020Q3

REPORT INFORMATION
  Report Type: Report from Study
  Country: US (occurrence: US)
  Receive Date: 20200713
  Receipt Date: 20200713
  Transmission Date: 20201103
  Serious: Yes (Death)
  Sender: FDA-Public Use
  Company Number: US-ACTELION-A-NJ2020-206331

PATIENT
  Age: 66 Year
  Sex: Female

DRUGS (5)
  1. VELETRI [Suspect]
     Active Substance: EPOPROSTENOL
     Indication: PULMONARY ARTERIAL HYPERTENSION
     Dosage: 28 NG/KG, PER MIN
     Route: 042
     Dates: start: 20191202, end: 20200626
  2. VELETRI [Suspect]
     Active Substance: EPOPROSTENOL
     Dosage: UNK UNK, PER MIN
     Route: 042
     Dates: start: 201912
  3. VELETRI [Suspect]
     Active Substance: EPOPROSTENOL
     Dosage: UNK UNK, PER MIN
     Route: 042
  4. OPSUMIT [Suspect]
     Active Substance: MACITENTAN
     Indication: PULMONARY ARTERIAL HYPERTENSION
     Dosage: 10 MG, QD
     Route: 048
     Dates: start: 201805, end: 20200626
  5. VELETRI [Suspect]
     Active Substance: EPOPROSTENOL
     Dosage: 36 NG/KG, PER MIN
     Route: 042
     Dates: start: 20200605, end: 20200610

REACTIONS (4)
  - Productive cough [Unknown]
  - Diarrhoea [Unknown]
  - Vomiting [Unknown]
  - Death [Fatal]

NARRATIVE: CASE EVENT DATE: 20200605
